FAERS Safety Report 4642145-7 (Version None)
Quarter: 2005Q2

REPORT INFORMATION
  Report Type: 
  Country: None (occurrence: None)
  Receive Date: 20050421
  Receipt Date: 20050421
  Transmission Date: 20051028
  Serious: Yes (Other)
  Sender: FDA-Public Use
  Company Number: None

PATIENT
  Age: 97 Year
  Sex: Female
  Weight: 68 kg

DRUGS (3)
  1. VANCOMYCIN [Suspect]
     Indication: UROSEPSIS
     Dosage: 140 MG Q 24 H
     Dates: start: 20050216, end: 20050222
  2. GENTAMICIN [Suspect]
     Indication: UROSEPSIS
     Dosage: 1.25 G Q 48 H
     Dates: start: 20050216, end: 20050223
  3. DIFLUCAN [Concomitant]

REACTIONS (1)
  - HYPOACUSIS [None]
